FAERS Safety Report 24814641 (Version 1)
Quarter: 2025Q1

REPORT INFORMATION
  Report Type: Spontaneous
  Country: US (occurrence: None)
  Receive Date: 20250107
  Receipt Date: 20250107
  Transmission Date: 20250409
  Serious: No
  Sender: FDA-CTU
  Company Number: None

PATIENT
  Sex: Male
  Weight: 91 kg

DRUGS (2)
  1. IFOSFAMIDE [Suspect]
     Active Substance: IFOSFAMIDE
  2. TAXOL [Suspect]
     Active Substance: PACLITAXEL

REACTIONS (1)
  - Bone pain [None]

NARRATIVE: CASE EVENT DATE: 20210713
